FAERS Safety Report 8296063-6 (Version None)
Quarter: 2012Q2

REPORT INFORMATION
  Report Type: 
  Country: None (occurrence: None)
  Receive Date: 20120418
  Receipt Date: 20110610
  Transmission Date: 20120825
  Serious: Yes (Hospitalization)
  Sender: FDA-Public Use
  Company Number: US-GLAXOSMITHKLINE-A0934176A

PATIENT
  Sex: Male

DRUGS (1)
  1. AVANDIA [Suspect]
     Indication: DIABETES MELLITUS
     Route: 048

REACTIONS (6)
  - CARDIAC OPERATION [None]
  - RENAL DISORDER [None]
  - CARDIAC FAILURE CONGESTIVE [None]
  - LEG AMPUTATION [None]
  - DIALYSIS [None]
  - MYOCARDIAL INFARCTION [None]
